FAERS Safety Report 12476658 (Version 1)
Quarter: 2016Q2

REPORT INFORMATION
  Report Type: Spontaneous
  Country: US (occurrence: US)
  Receive Date: 20160617
  Receipt Date: 20160617
  Transmission Date: 20160815
  Serious: No
  Sender: FDA-Public Use
  Company Number: US-009507513-1606USA003996

PATIENT
  Age: 35 Year
  Sex: Female
  Weight: 97.51 kg

DRUGS (18)
  1. VENLAFAXINE HYDROCHLORIDE. [Concomitant]
     Active Substance: VENLAFAXINE HYDROCHLORIDE
     Indication: DEPRESSION
     Dosage: 75 MG (1 TABLET) WITH FOOD TWICE A DAY
     Route: 048
  2. SUMAVEL [Concomitant]
     Active Substance: SUMATRIPTAN SUCCINATE
     Dosage: 0.5 ML, TWICE A DAY AS NEEDED
  3. ZOMIG [Concomitant]
     Active Substance: ZOLMITRIPTAN
     Dosage: 5 MG, IN ONE NOSTRIL, MAX 10 MG /24 H AS NEEDED
     Route: 045
  4. GABAPENTIN. [Concomitant]
     Active Substance: GABAPENTIN
     Indication: MIGRAINE PROPHYLAXIS
     Dosage: 900 MG, TID
  5. PHENERGAN (DIBROMPROPAMIDINE ISETHIONATE (+) PROMETHAZINE) [Concomitant]
     Indication: MIGRAINE WITH AURA
     Dosage: 1 SUPPOSITORY (12.5 MG) AS NEEDED, EVERY 6 HOURS AS NEEDED
     Route: 054
  6. PEPCID [Concomitant]
     Active Substance: FAMOTIDINE
     Dosage: 1 TABLET AT BEDTIME ONCE A DAY
     Route: 048
  7. GABAPENTIN. [Concomitant]
     Active Substance: GABAPENTIN
     Indication: NEURALGIA
  8. DIAZEPAM. [Concomitant]
     Active Substance: DIAZEPAM
     Dosage: 1 TABLET TWICE A DAY AS NEEDED
     Route: 048
  9. CAMBIA [Concomitant]
     Active Substance: DICLOFENAC POTASSIUM
     Indication: MIGRAINE WITH AURA
     Dosage: 1 PACKET ON AN EMPTY STOMACH ONE TIME (ONCE A DAY AS NEEDED)
     Route: 048
  10. DICLOFENAC POTASSIUM. [Concomitant]
     Active Substance: DICLOFENAC POTASSIUM
     Dosage: 1 TABLET TWICE A DAY AS NEEDED
     Route: 048
  11. TRAMADOL HYDROCHLORIDE. [Concomitant]
     Active Substance: TRAMADOL HYDROCHLORIDE
     Indication: MIGRAINE
     Dosage: UNK
  12. TYLENOL [Concomitant]
     Active Substance: ACETAMINOPHEN
     Dosage: 1 TABLET AS NEEDED
     Route: 048
  13. MAXALT-MLT [Suspect]
     Active Substance: RIZATRIPTAN BENZOATE
     Indication: MIGRAINE
     Dosage: UNK, PRN
  14. LYRICA [Concomitant]
     Active Substance: PREGABALIN
     Indication: MIGRAINE WITH AURA
     Dosage: 100 MG CAPSULE THREE TIMES A DAY
     Route: 048
  15. PREVACID [Concomitant]
     Active Substance: LANSOPRAZOLE
     Dosage: 1 DF, QD
     Route: 048
  16. ZOFRAN [Concomitant]
     Active Substance: ONDANSETRON HYDROCHLORIDE
     Indication: NAUSEA
     Dosage: DISSOLVE ONE TABLET BY MOUTH EVERY 6 HOURS AS NEEDED
     Route: 048
  17. ZOFRAN [Concomitant]
     Active Substance: ONDANSETRON HYDROCHLORIDE
     Indication: VOMITING
  18. ADVIL [Concomitant]
     Active Substance: IBUPROFEN
     Dosage: 1 TABLET AS NEEDED
     Route: 048

REACTIONS (4)
  - Therapeutic response decreased [Unknown]
  - Contusion [Unknown]
  - Pain [Unknown]
  - Fall [Unknown]

NARRATIVE: CASE EVENT DATE: 201512
